FAERS Safety Report 5664394-1 (Version None)
Quarter: 2008Q1

REPORT INFORMATION
  Report Type: 
  Country: None (occurrence: None)
  Receive Date: 20080311
  Receipt Date: 20080311
  Transmission Date: 20080703
  Serious: Yes (Hospitalization)
  Sender: FDA-Public Use
  Company Number: None

PATIENT
  Age: 28 Year
  Sex: Male
  Weight: 66 kg

DRUGS (2)
  1. TACROLIMUS [Suspect]
     Indication: HEART TRANSPLANT
     Dosage: 2 MG BID PO
     Route: 048
     Dates: start: 20080301, end: 20080309
  2. VALGANCYCLOVIR 450 MG [Suspect]
     Indication: HEART TRANSPLANT
     Dosage: 900 MG DAILY PO PRESENT
     Route: 048

REACTIONS (2)
  - CONVULSION [None]
  - RENAL IMPAIRMENT [None]
